FAERS Safety Report 8973892 (Version 2)
Quarter: 2014Q4

REPORT INFORMATION
  Report Type: Spontaneous
  Country: US (occurrence: US)
  Receive Date: 20121218
  Receipt Date: 20141003
  Transmission Date: 20150529
  Serious: Yes (Hospitalization)
  Sender: FDA-Public Use
  Company Number: US-GLAXOSMITHKLINE-A1005622A

PATIENT
  Age: 49 Year
  Sex: Female

DRUGS (1)
  1. LAMICTAL XR [Suspect]
     Active Substance: LAMOTRIGINE
     Indication: NERVOUS SYSTEM DISORDER
     Dosage: 200MG UNKNOWN
     Route: 048
     Dates: start: 20110603

REACTIONS (3)
  - Multiple sclerosis [Unknown]
  - Surgery [Unknown]
  - Brain operation [Unknown]

NARRATIVE: CASE EVENT DATE: 201212
